FAERS Safety Report 7599378-X (Version None)
Quarter: 2011Q3

REPORT INFORMATION
  Report Type: 
  Country: None (occurrence: None)
  Receive Date: 20110711
  Receipt Date: 20110415
  Transmission Date: 20111222
  Serious: Yes (Death)
  Sender: FDA-Public Use
  Company Number: US-BAYER-201029234NA

PATIENT
  Age: 53 Year
  Sex: Female
  Weight: 114.74 kg

DRUGS (37)
  1. OMNISCAN [Suspect]
     Indication: NUCLEAR MAGNETIC RESONANCE IMAGING
  2. ALLOPURINOL [Concomitant]
  3. NORCO [Concomitant]
  4. ENALAPRIL MALEATE [Concomitant]
  5. ACETYLSALICYLIC ACID SRT [Concomitant]
  6. MULTIHANCE [Suspect]
     Indication: NUCLEAR MAGNETIC RESONANCE IMAGING
  7. RENAGEL [Concomitant]
  8. SANTYL [Concomitant]
  9. OPTIMARK [Suspect]
     Indication: NUCLEAR MAGNETIC RESONANCE IMAGING
  10. ATIVAN [Concomitant]
  11. WELLBUTRIN XL [Concomitant]
  12. NPH INSULIN [Concomitant]
  13. PHOSLO [Concomitant]
  14. EPOGEN [Concomitant]
  15. VASOTEC [Concomitant]
  16. GLUCOTROL [Concomitant]
  17. DEMEDEX [Concomitant]
  18. IBUPROFEN [Concomitant]
  19. ASTELIN [Concomitant]
  20. XOPENEX [Concomitant]
  21. ZELNORM [Concomitant]
  22. TORSEMIDE [Concomitant]
  23. PROHANCE [Suspect]
     Indication: NUCLEAR MAGNETIC RESONANCE IMAGING
  24. MIRAPEX [Concomitant]
  25. HYDROCODONE BITARTRATE AND ACETAMINOPHEN [Concomitant]
  26. ZYLOPRIM [Concomitant]
  27. KEPPRA [Concomitant]
  28. HUMULIN N [Concomitant]
  29. SYNTHROID [Concomitant]
  30. ATROVENT [Concomitant]
  31. MAGNEVIST [Suspect]
     Indication: NUCLEAR MAGNETIC RESONANCE IMAGING
  32. AVANDIA [Concomitant]
  33. REGULAR INSULIN [Concomitant]
  34. NEURONTIN [Concomitant]
  35. SENSIPAR [Concomitant]
  36. VASOPRESSIN [Concomitant]
  37. ASPIRIN [Concomitant]

REACTIONS (3)
  - NEPHROGENIC SYSTEMIC FIBROSIS [None]
  - INJURY [None]
  - PAIN [None]
